FAERS Safety Report 18514704 (Version 5)
Quarter: 2020Q4

REPORT INFORMATION
  Report Type: Spontaneous
  Country: CA (occurrence: CA)
  Receive Date: 20201118
  Receipt Date: 20201221
  Transmission Date: 20210114
  Serious: Yes (Other)
  Sender: FDA-Public Use
  Company Number: CA-CELLTRION INC.-2020CA030608

PATIENT

DRUGS (5)
  1. INFLECTRA [Suspect]
     Active Substance: INFLIXIMAB-DYYB
     Indication: COLITIS ULCERATIVE
     Dosage: 5 MG/KG WEEKS 0, 2, 6 THEN EVERY 8 WEEKS
     Route: 042
     Dates: start: 20201019
  2. PREDNISONE. [Concomitant]
     Active Substance: PREDNISONE
     Dosage: UNK
     Route: 065
  3. INFLECTRA [Suspect]
     Active Substance: INFLIXIMAB-DYYB
     Dosage: 5 MG/KG WEEKS 0, 2, 6 THEN EVERY 8 WEEKS
     Route: 042
     Dates: start: 20201210
  4. INFLECTRA [Suspect]
     Active Substance: INFLIXIMAB-DYYB
     Dosage: 5 MG/KG WEEKS 0, 2, 6 THEN EVERY 8 WEEKS
     Route: 042
     Dates: start: 20201105, end: 20201105
  5. INFLECTRA [Suspect]
     Active Substance: INFLIXIMAB-DYYB
     Dosage: 5 MG/KG WEEKS 0, 2, 6 THEN EVERY 8 WEEKS
     Route: 042
     Dates: start: 20201203

REACTIONS (8)
  - Weight increased [Unknown]
  - Dizziness [Unknown]
  - Hypoaesthesia [Not Recovered/Not Resolved]
  - Intentional product use issue [Unknown]
  - Visual impairment [Not Recovered/Not Resolved]
  - Hypotension [Unknown]
  - Off label use [Unknown]
  - Haemorrhage [Recovered/Resolved]

NARRATIVE: CASE EVENT DATE: 2020
